FAERS Safety Report 8255302-8 (Version None)
Quarter: 2012Q2

REPORT INFORMATION
  Report Type: 
  Country: None (occurrence: None)
  Receive Date: 20120403
  Receipt Date: 20120322
  Transmission Date: 20120825
  Serious: Yes (Death, Life-Threatening, Hospitalization)
  Sender: FDA-Public Use
  Company Number: JP-BRISTOL-MYERS SQUIBB COMPANY-16417412

PATIENT
  Age: 81 Year
  Sex: Male

DRUGS (20)
  1. DIART [Concomitant]
     Route: 048
  2. LENDORMIN [Concomitant]
     Route: 048
  3. NICHISTATE [Concomitant]
     Route: 048
  4. PANTETHINE [Concomitant]
     Route: 048
  5. MAGNESIUM OXIDE [Concomitant]
     Route: 048
  6. METFORMIN HCL [Suspect]
     Indication: DIABETES MELLITUS
     Route: 048
     Dates: start: 20110128, end: 20110714
  7. ASPIRIN [Concomitant]
     Route: 048
  8. ARGAMATE [Concomitant]
     Route: 048
  9. NITROGLYCERIN [Concomitant]
     Route: 048
  10. ALLOPURINOL [Concomitant]
     Route: 048
  11. AMARYL [Concomitant]
     Route: 048
  12. ALDACTONE [Concomitant]
     Route: 048
  13. LIVALO [Concomitant]
     Route: 048
  14. BISOPROLOL FUMARATE [Concomitant]
     Route: 048
  15. MOBIC [Concomitant]
     Route: 048
  16. AMIODARONE HYDROCHLORIDE [Concomitant]
     Route: 048
  17. METFORMIN HCL [Suspect]
     Indication: DIABETES MELLITUS
     Dosage: 500MG THIRCE A DAY
     Route: 048
     Dates: start: 20110715, end: 20110827
  18. WARFARIN SODIUM [Concomitant]
     Route: 048
  19. METHYCOBAL [Concomitant]
     Route: 048
  20. MUCOSTA [Concomitant]
     Route: 048

REACTIONS (2)
  - LACTIC ACIDOSIS [None]
  - RENAL IMPAIRMENT [None]
